FAERS Safety Report 4441618-X (Version None)
Quarter: 2004Q3

REPORT INFORMATION
  Report Type: 
  Country: None (occurrence: None)
  Receive Date: 20040907
  Receipt Date: 20040610
  Transmission Date: 20050211
  Serious: Yes (Death, Hospitalization)
  Sender: FDA-Public Use
  Company Number: US-BRISTOL-MYERS SQUIBB COMPANY-12610960

PATIENT
  Age: 53 Year
  Sex: Male

DRUGS (10)
  1. TEQUIN [Suspect]
     Indication: TOOTH ABSCESS
     Route: 048
     Dates: start: 20040520, end: 20040604
  2. WARFARIN SODIUM [Suspect]
     Dosage: STARTED ON 7.0 MG DAILY, INCREASED TO 7.5 MG DAILY 25-MAY-2004.
  3. CLOZAPINE [Concomitant]
     Dates: start: 20030417, end: 20040604
  4. LISINOPRIL [Concomitant]
     Dates: start: 20040501
  5. CITALOPRAM [Concomitant]
     Dates: start: 20020401
  6. SIMVASTATIN [Concomitant]
     Dosage: DISCONTINUED DUE TO HIGH CPK LEVEL.
     Dates: start: 20020522, end: 20040604
  7. CLONAZEPAM [Concomitant]
     Dates: start: 20030301, end: 20040604
  8. SENNA [Concomitant]
     Dosage: DOSAGE FORM = TABLET
     Dates: start: 20031101
  9. ZANTAC [Concomitant]
     Dates: start: 20030901, end: 20040604
  10. LORAZEPAM [Concomitant]

REACTIONS (3)
  - CARDIAC ARREST [None]
  - GASTROINTESTINAL HAEMORRHAGE [None]
  - OESOPHAGEAL ULCER [None]
